FAERS Safety Report 23051441 (Version 1)
Quarter: 2023Q4

REPORT INFORMATION
  Report Type: Spontaneous
  Country: US (occurrence: US)
  Receive Date: 20231010
  Receipt Date: 20231010
  Transmission Date: 20240110
  Serious: No
  Sender: FDA-Public Use
  Company Number: US-GSKCCFUS-Case-01821649_AE-101881

PATIENT
  Age: 65 Year
  Sex: Male

DRUGS (1)
  1. TRELEGY ELLIPTA [Suspect]
     Active Substance: FLUTICASONE FUROATE\UMECLIDINIUM BROMIDE\VILANTEROL TRIFENATATE
     Indication: Product used for unknown indication
     Dosage: UNK, 200/62.5/25 MCG
     Dates: start: 202309

REACTIONS (5)
  - Chest pain [Recovering/Resolving]
  - Heart rate increased [Unknown]
  - Dizziness [Unknown]
  - Pain in extremity [Unknown]
  - Hypoaesthesia [Unknown]
